FAERS Safety Report 18970737 (Version 1)
Quarter: 2021Q1

REPORT INFORMATION
  Report Type: Spontaneous
  Country: US (occurrence: US)
  Receive Date: 20210304
  Receipt Date: 20210304
  Transmission Date: 20210420
  Serious: No
  Sender: FDA-Public Use
  Company Number: US-009507513-2102USA003135

PATIENT
  Age: 73 Year
  Sex: Male

DRUGS (5)
  1. BUPROPION. [Concomitant]
     Active Substance: BUPROPION
  2. TRAZODONE HYDROCHLORIDE. [Concomitant]
     Active Substance: TRAZODONE HYDROCHLORIDE
  3. PANTOPRAZOLE [Concomitant]
     Active Substance: PANTOPRAZOLE
  4. GLUCOSAMINE [Concomitant]
     Active Substance: GLUCOSAMINE
  5. PROVENTIL [Suspect]
     Active Substance: ALBUTEROL
     Indication: CHRONIC OBSTRUCTIVE PULMONARY DISEASE
     Dosage: PRESCRIBED DOSAGE: 1?2 PUFFS EVERY 4?6 HOURS AS NEEDED
     Route: 055
     Dates: start: 202101

REACTIONS (4)
  - Product quality issue [Unknown]
  - Device material issue [Unknown]
  - Product dose omission issue [Unknown]
  - Poor quality device used [Unknown]

NARRATIVE: CASE EVENT DATE: 202101
